FAERS Safety Report 19698290 (Version 1)
Quarter: 2021Q3

REPORT INFORMATION
  Report Type: Spontaneous
  Country: IL (occurrence: IL)
  Receive Date: 20210813
  Receipt Date: 20210813
  Transmission Date: 20211014
  Serious: Yes (Other)
  Sender: FDA-Public Use
  Company Number: IL-ELI_LILLY_AND_COMPANY-IL202108000696

PATIENT
  Age: 39 Year
  Sex: Male

DRUGS (2)
  1. HUMALOG [Suspect]
     Active Substance: INSULIN LISPRO
     Indication: TYPE 1 DIABETES MELLITUS
     Dosage: UNK, UNKNOWN
     Route: 058
     Dates: start: 2006
  2. HUMALOG [Suspect]
     Active Substance: INSULIN LISPRO
     Dosage: UNK, UNKNOWN
     Route: 058

REACTIONS (9)
  - Blood glucose increased [Unknown]
  - Diabetic ketoacidosis [Unknown]
  - Decreased appetite [Unknown]
  - Blood glucose increased [Recovered/Resolved]
  - Incorrect product administration duration [Unknown]
  - Weight decreased [Unknown]
  - Hallucination [Unknown]
  - Abnormal dreams [Unknown]
  - Drug ineffective [Recovered/Resolved]

NARRATIVE: CASE EVENT DATE: 20210721
